FAERS Safety Report 13110114 (Version 1)
Quarter: 2017Q1

REPORT INFORMATION
  Report Type: Spontaneous
  Country: US (occurrence: US)
  Receive Date: 20170112
  Receipt Date: 20170112
  Transmission Date: 20170428
  Serious: Yes (Life-Threatening)
  Sender: FDA-Public Use
  Company Number: US-ROCHE-1284547

PATIENT
  Age: 21 Year
  Sex: Female

DRUGS (1)
  1. ALTEPLASE [Suspect]
     Active Substance: ALTEPLASE
     Indication: ISCHAEMIC STROKE
     Dosage: THERAPY DURATION :90 MINS
     Route: 013

REACTIONS (2)
  - Brain herniation [Recovered/Resolved]
  - Brain oedema [Recovered/Resolved]
